FAERS Safety Report 5507311-7 (Version None)
Quarter: 2007Q4

REPORT INFORMATION
  Report Type: 
  Country: None (occurrence: None)
  Receive Date: 20071102
  Receipt Date: 20071019
  Transmission Date: 20080405
  Serious: Yes (Death)
  Sender: FDA-Public Use
  Company Number: 2007BM000154

PATIENT
  Age: 54 Year
  Sex: Female

DRUGS (9)
  1. PREDNISONE [Suspect]
     Indication: GRAFT VERSUS HOST DISEASE
     Dosage: 2 MG/KG; 0.2 MG/KG
     Dates: start: 20060101
  2. PREDNISONE [Suspect]
     Indication: GRAFT VERSUS HOST DISEASE
     Dosage: 2 MG/KG; 0.2 MG/KG
     Dates: start: 20060101
  3. ORAPRED [Suspect]
  4. CYCLOPHOSPHAMIDE [Concomitant]
  5. CYCLOSPORINE [Concomitant]
  6. METHOTREXATE [Concomitant]
  7. TRIMETHOPRIM [Concomitant]
  8. SULFAMETHOXAZOLE [Concomitant]
  9. IMATINIB [Concomitant]

REACTIONS (5)
  - CEREBRAL TOXOPLASMOSIS [None]
  - ENCEPHALITIS [None]
  - PNEUMONIA BACTERIAL [None]
  - PSEUDOMONAL SEPSIS [None]
  - THERAPEUTIC RESPONSE DECREASED [None]
